FAERS Safety Report 6234791-4 (Version None)
Quarter: 2009Q2

REPORT INFORMATION
  Report Type: 
  Country: None (occurrence: None)
  Receive Date: 20090618
  Receipt Date: 20090612
  Transmission Date: 20091009
  Serious: Yes (Hospitalization)
  Sender: FDA-Public Use
  Company Number: PHHO2008HU11848

PATIENT
  Sex: Male
  Weight: 16 kg

DRUGS (1)
  1. ELIDEL ASM+CRE [Suspect]
     Indication: DERMATITIS ATOPIC
     Dosage: TWICE DAILY
     Route: 061
     Dates: start: 20041202

REACTIONS (9)
  - ASTHMA [None]
  - BRONCHITIS [None]
  - BRONCHOSPASM [None]
  - COUGH [None]
  - DEHYDRATION [None]
  - DYSPNOEA [None]
  - HOUSE DUST ALLERGY [None]
  - PNEUMONIA [None]
  - RHINITIS ALLERGIC [None]
